FAERS Safety Report 8552649-2 (Version None)
Quarter: 2012Q3

REPORT INFORMATION
  Report Type: 
  Country: None (occurrence: None)
  Receive Date: 20120719
  Receipt Date: 20120706
  Transmission Date: 20120928
  Serious: Yes (Hospitalization)
  Sender: FDA-Public Use
  Company Number: 2012CP000077

PATIENT
  Age: 59 Year
  Sex: Female

DRUGS (6)
  1. ACETAMINOPHEN [Suspect]
     Dosage: 1 GRAM,4/1 DAY, IV
     Route: 042
     Dates: start: 20120513, end: 20120515
  2. TRANXENE [Concomitant]
  3. CHLORPROMAZINE HCL [Concomitant]
  4. TRAMADOL HYDROHLORIDE [Suspect]
     Dosage: 50 MG, 2/1 DAY, PO
     Route: 048
     Dates: start: 20120513, end: 20120515
  5. PHLOROGLUCINOL [Concomitant]
  6. TRIMETHYLPHLOROGLUCINOL [Concomitant]

REACTIONS (4)
  - PANCREATITIS ACUTE [None]
  - CYTOLYTIC HEPATITIS [None]
  - ARTHRALGIA [None]
  - ULNA FRACTURE [None]
